FAERS Safety Report 4984208-2 (Version None)
Quarter: 2006Q2

REPORT INFORMATION
  Report Type: 
  Country: None (occurrence: None)
  Receive Date: 20060427
  Receipt Date: 20030725
  Transmission Date: 20061013
  Serious: Yes (Hospitalization)
  Sender: FDA-Public Use
  Company Number: PHHO2003US09528

PATIENT
  Age: 79 Year
  Sex: Female
  Weight: 45 kg

DRUGS (2)
  1. PLAVIX [Concomitant]
     Dosage: UNK, QD
     Route: 048
     Dates: start: 20030619
  2. FORADIL [Suspect]
     Indication: ASTHMA
     Dosage: 12 UG, BID
     Dates: start: 20030605, end: 20030714

REACTIONS (2)
  - MYOCARDIAL INFARCTION [None]
  - RESPIRATORY DISTRESS [None]
